FAERS Safety Report 5113679-6 (Version None)
Quarter: 2006Q3

REPORT INFORMATION
  Report Type: 
  Country: None (occurrence: None)
  Receive Date: 20060921
  Receipt Date: 20060921
  Transmission Date: 20061208
  Serious: Yes (Life-Threatening, Hospitalization)
  Sender: FDA-Public Use
  Company Number: None

PATIENT
  Age: 88 Year
  Sex: Female
  Weight: 64.4 kg

DRUGS (2)
  1. GLARGINE [Suspect]
     Indication: DIABETES MELLITUS INSULIN-DEPENDENT
     Dosage: 10 U SC QHS
     Route: 058
  2. GLIPIZIDE [Suspect]
     Indication: DIABETES MELLITUS INSULIN-DEPENDENT
     Dosage: 5 MG PO QD
     Route: 048

REACTIONS (3)
  - BLOOD GLUCOSE DECREASED [None]
  - MALAISE [None]
  - ORAL INTAKE REDUCED [None]
